FAERS Safety Report 5806053-8 (Version None)
Quarter: 2008Q3

REPORT INFORMATION
  Report Type: 
  Country: None (occurrence: None)
  Receive Date: 20080710
  Receipt Date: 20080707
  Transmission Date: 20090109
  Serious: Yes (Other)
  Sender: FDA-Public Use
  Company Number: US-ASTRAZENECA-2008UW13578

PATIENT
  Age: 76 Year
  Sex: Female
  Weight: 74.8 kg

DRUGS (3)
  1. NEXIUM [Suspect]
     Indication: GASTROOESOPHAGEAL REFLUX DISEASE
     Route: 048
  2. CRESTOR [Suspect]
     Indication: BLOOD CHOLESTEROL INCREASED
     Route: 048
     Dates: start: 20060101
  3. TOPROL-XL [Concomitant]
     Route: 048

REACTIONS (4)
  - CONVULSION [None]
  - COUGH [None]
  - FATIGUE [None]
  - INCREASED UPPER AIRWAY SECRETION [None]
